FAERS Safety Report 9746397 (Version 2)
Quarter: 2014Q1

REPORT INFORMATION
  Report Type: Spontaneous
  Country: CO (occurrence: CO)
  Receive Date: 20131211
  Receipt Date: 20140130
  Transmission Date: 20141002
  Serious: Yes (Other)
  Sender: FDA-Public Use
  Company Number: CO-GLAXOSMITHKLINE-A1053101A

PATIENT
  Age: 47 Year
  Sex: Male
  Weight: 38.6 kg

DRUGS (1)
  1. WELLBUTRIN [Suspect]
     Indication: DEPRESSION
     Dosage: 300MG UNKNOWN
     Route: 048
     Dates: start: 201310

REACTIONS (2)
  - Parasomnia [Recovered/Resolved]
  - Ill-defined disorder [Recovered/Resolved]
